FAERS Safety Report 24839491 (Version 1)
Quarter: 2025Q1

REPORT INFORMATION
  Report Type: Spontaneous
  Country: FR (occurrence: FR)
  Receive Date: 20250114
  Receipt Date: 20250114
  Transmission Date: 20250408
  Serious: Yes (Hospitalization)
  Sender: TAKEDA
  Company Number: None

PATIENT
  Age: 28 Year
  Sex: Female
  Weight: 61.4 kg

DRUGS (3)
  1. ENTYVIO [Suspect]
     Active Substance: VEDOLIZUMAB
     Indication: Colitis
     Dates: start: 20241001, end: 20241001
  2. ENTYVIO [Suspect]
     Active Substance: VEDOLIZUMAB
     Dates: start: 20241016, end: 20241016
  3. PENTASA [Suspect]
     Active Substance: MESALAMINE
     Indication: Colitis
     Dosage: 4 GRAM, QD
     Dates: start: 20240929, end: 20241031

REACTIONS (1)
  - Acute generalised exanthematous pustulosis [Recovered/Resolved]

NARRATIVE: CASE EVENT DATE: 20241020
